FAERS Safety Report 15231009 (Version 1)
Quarter: 2018Q3

REPORT INFORMATION
  Report Type: Spontaneous
  Country: US (occurrence: US)
  Receive Date: 20180802
  Receipt Date: 20180802
  Transmission Date: 20181010
  Serious: Yes (Other)
  Sender: FDA-Public Use
  Company Number: US-ACCORD-064086

PATIENT
  Sex: Female

DRUGS (5)
  1. FEMARA [Concomitant]
     Active Substance: LETROZOLE
     Dosage: STRENGTH: 25 MG
     Route: 048
     Dates: start: 20130510
  2. REGLAN [Concomitant]
     Active Substance: METOCLOPRAMIDE HYDROCHLORIDE
     Dosage: STRENGTH: 10 MG
     Route: 048
     Dates: start: 20130510
  3. NEXIUM [Concomitant]
     Active Substance: ESOMEPRAZOLE MAGNESIUM
     Dosage: STRENGTH: 40 MG
     Route: 048
     Dates: start: 20121025
  4. DOCETAXEL ACCORD [Suspect]
     Active Substance: DOCETAXEL
     Indication: BREAST CANCER
     Dosage: NO OF CYCLE: 12
     Dates: start: 20120726, end: 20130329
  5. ZOFRAN [Concomitant]
     Active Substance: ONDANSETRON HYDROCHLORIDE
     Dosage: Q6H
     Route: 048
     Dates: start: 20121025

REACTIONS (1)
  - Alopecia [Not Recovered/Not Resolved]
